FAERS Safety Report 17687115 (Version 1)
Quarter: 2020Q2

REPORT INFORMATION
  Report Type: Spontaneous
  Country: US (occurrence: US)
  Receive Date: 20200421
  Receipt Date: 20200421
  Transmission Date: 20200714
  Serious: No
  Sender: FDA-Public Use
  Company Number: US-009507513-2004USA005297

PATIENT
  Age: 50 Year
  Sex: Male

DRUGS (1)
  1. INTRON A [Suspect]
     Active Substance: INTERFERON ALFA-2B
     Indication: ACRAL LENTIGINOUS MELANOMA
     Dosage: UNK

REACTIONS (2)
  - Fatigue [Unknown]
  - Nodule [Recovered/Resolved]
